FAERS Safety Report 17772547 (Version 3)
Quarter: 2020Q3

REPORT INFORMATION
  Report Type: Spontaneous
  Country: NL (occurrence: ES)
  Receive Date: 20200512
  Receipt Date: 20200706
  Transmission Date: 20201102
  Serious: Yes (Other)
  Sender: FDA-Public Use
  Company Number: ES-FRESENIUS KABI-FK202004490

PATIENT
  Age: 78 Year
  Sex: Male
  Weight: 75 kg

DRUGS (15)
  1. ZEA MAYS EXTRACT [Concomitant]
     Indication: PRODUCT USED FOR UNKNOWN INDICATION
     Route: 065
  2. FORMOTEROL FUMARATE/BUDESONIDE [Concomitant]
     Active Substance: BUDESONIDE\FORMOTEROL FUMARATE
     Indication: PRODUCT USED FOR UNKNOWN INDICATION
     Route: 065
  3. VALSARTAN. [Concomitant]
     Active Substance: VALSARTAN
     Indication: PRODUCT USED FOR UNKNOWN INDICATION
     Route: 065
  4. CEFTRIAXON (MANUFACTURER UNKNOWN) [Suspect]
     Active Substance: CEFTRIAXONE
     Indication: CORONAVIRUS INFECTION
     Route: 065
     Dates: start: 20200330, end: 20200402
  5. TAMSULOSIN HYDROCHLORIDE. [Concomitant]
     Active Substance: TAMSULOSIN HYDROCHLORIDE
     Indication: PRODUCT USED FOR UNKNOWN INDICATION
     Route: 065
  6. MIDAZOLAM (MANUFACTURER UNKNOWN) [Suspect]
     Active Substance: MIDAZOLAM HYDROCHLORIDE
     Indication: CORONAVIRUS INFECTION
     Route: 065
     Dates: start: 20200328
  7. HYDROXYCHLOROQUINE SULFATE. [Suspect]
     Active Substance: HYDROXYCHLOROQUINE SULFATE
     Indication: CORONAVIRUS INFECTION
     Dosage: A COMPRESSED BREAKFAST AND DINNER
     Route: 048
     Dates: start: 20200328, end: 20200331
  8. VERAPAMIL HYDROCHLORIDE. [Concomitant]
     Active Substance: VERAPAMIL HYDROCHLORIDE
     Indication: PRODUCT USED FOR UNKNOWN INDICATION
     Route: 065
  9. HYDROCORTISONE ACETATE. [Concomitant]
     Active Substance: HYDROCORTISONE ACETATE
     Indication: CORONAVIRUS INFECTION
     Route: 065
     Dates: start: 20200328
  10. MIDAZOLAM (MANUFACTURER UNKNOWN) [Suspect]
     Active Substance: MIDAZOLAM HYDROCHLORIDE
     Indication: ANALGESIC THERAPY
  11. PROPOFOL (MANUFACTURER UNKNOWN) [Suspect]
     Active Substance: PROPOFOL
     Indication: ANALGESIC THERAPY
     Route: 065
     Dates: start: 20200328
  12. PROPOFOL (MANUFACTURER UNKNOWN) [Suspect]
     Active Substance: PROPOFOL
     Indication: CORONAVIRUS INFECTION
  13. RITONAVIR/LOPINAVIR [Suspect]
     Active Substance: LOPINAVIR\RITONAVIR
     Indication: CORONAVIRUS INFECTION
     Route: 048
     Dates: start: 20200330
  14. SIMVASTATIN. [Concomitant]
     Active Substance: SIMVASTATIN
     Indication: PRODUCT USED FOR UNKNOWN INDICATION
     Route: 065
  15. AZITHROMYCIN ANHYDROUS. [Suspect]
     Active Substance: AZITHROMYCIN ANHYDROUS
     Indication: CORONAVIRUS INFECTION
     Route: 065

REACTIONS (3)
  - Bradycardia [Recovered/Resolved]
  - Long QT syndrome [Recovered/Resolved]
  - Product use in unapproved indication [Unknown]

NARRATIVE: CASE EVENT DATE: 20200331
